FAERS Safety Report 9287029 (Version 1)
Quarter: 2013Q2

REPORT INFORMATION
  Report Type: Spontaneous
  Country: US (occurrence: US)
  Receive Date: 20130513
  Receipt Date: 20130513
  Transmission Date: 20140414
  Serious: Yes (Other)
  Sender: FDA-Public Use
  Company Number: US-ELI_LILLY_AND_COMPANY-US201305001642

PATIENT
  Age: 49 Year
  Sex: Female

DRUGS (1)
  1. HUMALOG LISPRO [Suspect]
     Dosage: UNK, PRN
     Dates: start: 201304

REACTIONS (3)
  - Infection [Unknown]
  - Blood glucose increased [Unknown]
  - Drug ineffective [Unknown]
